FAERS Safety Report 8268280-2 (Version None)
Quarter: 2012Q2

REPORT INFORMATION
  Report Type: 
  Country: None (occurrence: None)
  Receive Date: 20120409
  Receipt Date: 20120403
  Transmission Date: 20120825
  Serious: Yes (Other)
  Sender: FDA-Public Use
  Company Number: PHHY2012ES024917

PATIENT
  Age: 23 Year
  Sex: Female

DRUGS (2)
  1. AMOXICILLIN AND CLAVULANATE POTASSIUM [Suspect]
     Indication: PYELONEPHRITIS
  2. METAMIZOLE [Suspect]
     Indication: PYELONEPHRITIS ACUTE
     Dosage: 2 G, Q8H
     Route: 042

REACTIONS (7)
  - OLIGOHYDRAMNIOS [None]
  - SYNCOPE [None]
  - GENERAL PHYSICAL CONDITION ABNORMAL [None]
  - MATERNAL EXPOSURE DURING PREGNANCY [None]
  - AMNIOTIC FLUID VOLUME DECREASED [None]
  - PREMATURE DELIVERY [None]
  - AMNIOTIC FLUID INDEX ABNORMAL [None]
